FAERS Safety Report 5481462-8 (Version None)
Quarter: 2007Q4

REPORT INFORMATION
  Report Type: 
  Country: None (occurrence: None)
  Receive Date: 20071005
  Receipt Date: 20071005
  Transmission Date: 20080405
  Serious: Yes (Other)
  Sender: FDA-Public Use
  Company Number: None

PATIENT
  Age: 68 Year
  Sex: Female

DRUGS (1)
  1. LISINOPRIL [Suspect]
     Dosage: TAKE 1 TABLET BY MOUTH DAILY
     Route: 048

REACTIONS (1)
  - PHARMACEUTICAL PRODUCT COMPLAINT [None]
